FAERS Safety Report 25115613 (Version 1)
Quarter: 2025Q1

REPORT INFORMATION
  Report Type: Spontaneous
  Country: US (occurrence: US)
  Receive Date: 20250325
  Receipt Date: 20250325
  Transmission Date: 20250409
  Serious: Yes (Other)
  Sender: AMGEN
  Company Number: US-AMGEN-USASP2025053126

PATIENT
  Sex: Male

DRUGS (1)
  1. AVSOLA [Suspect]
     Active Substance: INFLIXIMAB-AXXQ
     Indication: Ankylosing spondylitis
     Dosage: 5 MILLIGRAM/KILOGRAM, Q4WK
     Route: 040

REACTIONS (6)
  - Arthroscopy [Unknown]
  - Pilonidal disease [Unknown]
  - Neck surgery [Unknown]
  - Exostosis [Unknown]
  - Ear infection [Unknown]
  - Inappropriate schedule of product administration [Unknown]
